FAERS Safety Report 12483831 (Version 1)
Quarter: 2016Q2

REPORT INFORMATION
  Report Type: Spontaneous
  Country: US (occurrence: None)
  Receive Date: 20160620
  Receipt Date: 20160620
  Transmission Date: 20160815
  Serious: No
  Sender: FDA-Public Use
  Company Number: None

PATIENT
  Age: 54 Year
  Sex: Female

DRUGS (5)
  1. AMPHET/DEXTR [Concomitant]
  2. FLUCONAZOLE. [Concomitant]
     Active Substance: FLUCONAZOLE
  3. FORTEO [Suspect]
     Active Substance: TERIPARATIDE
     Indication: OSTEOPOROSIS
     Route: 048
     Dates: start: 201508
  4. ADDERALL [Concomitant]
     Active Substance: AMPHETAMINE ASPARTATE\AMPHETAMINE SULFATE\DEXTROAMPHETAMINE SACCHARATE\DEXTROAMPHETAMINE SULFATE
  5. AMPHETAMINE [Concomitant]
     Active Substance: AMPHETAMINE

REACTIONS (2)
  - Rash pruritic [None]
  - Joint swelling [None]

NARRATIVE: CASE EVENT DATE: 201604
